FAERS Safety Report 18826198 (Version 1)
Quarter: 2021Q1

REPORT INFORMATION
  Report Type: Spontaneous
  Country: US (occurrence: US)
  Receive Date: 20210201
  Receipt Date: 20210201
  Transmission Date: 20210419
  Serious: No
  Sender: FDA-Public Use
  Company Number: US-ABBVIE-20K-163-3378856-00

PATIENT
  Sex: Male
  Weight: 91.63 kg

DRUGS (3)
  1. HUMIRA [Suspect]
     Active Substance: ADALIMUMAB
     Indication: ARTHRALGIA
     Route: 058
     Dates: start: 201903
  2. HUMIRA [Suspect]
     Active Substance: ADALIMUMAB
     Route: 058
     Dates: end: 201912
  3. ENBREL [Suspect]
     Active Substance: ETANERCEPT
     Indication: ARTHRALGIA
     Dosage: 15MG/ML
     Route: 065
     Dates: start: 201912, end: 20200419

REACTIONS (4)
  - Drug ineffective [Unknown]
  - Therapeutic product effect decreased [Unknown]
  - Inappropriate schedule of product administration [Unknown]
  - Drug specific antibody present [Unknown]
